FAERS Safety Report 23279719 (Version 1)
Quarter: 2023Q4

REPORT INFORMATION
  Report Type: Spontaneous
  Country: US (occurrence: US)
  Receive Date: 20231210
  Receipt Date: 20231210
  Transmission Date: 20240109
  Serious: Yes (Other)
  Sender: FDA-Public Use
  Company Number: US-AUROBINDO-AUR-APL-2023-076447

PATIENT
  Age: 53 Year
  Sex: Male

DRUGS (4)
  1. DEXAMETHASONE [Suspect]
     Active Substance: DEXAMETHASONE
     Indication: Osteoarthritis
     Dosage: 10 MILLIGRAM,IN EACH C4-5, C5-6 AND C6-7 FACET JOINTS
     Route: 065
     Dates: end: 201811
  2. TRIAMCINOLONE [Suspect]
     Active Substance: TRIAMCINOLONE
     Indication: Osteoarthritis
     Dosage: 5 MILLIGRAM, IN THE RIGHT C4-5, C6-C7, LEFT C4-5, C6 AND C7
     Route: 065
     Dates: end: 201811
  3. TRIAMCINOLONE [Suspect]
     Active Substance: TRIAMCINOLONE
     Dosage: 40 MILLIGRAM,IN C7-T1
     Route: 065
     Dates: end: 201811
  4. PREDNISONE [Suspect]
     Active Substance: PREDNISONE
     Indication: Swelling face
     Dosage: UNK
     Route: 065

REACTIONS (2)
  - Cushing^s syndrome [Unknown]
  - Drug ineffective [Unknown]
